FAERS Safety Report 10023829 (Version 1)
Quarter: 2014Q1

REPORT INFORMATION
  Report Type: Spontaneous
  Country: US (occurrence: None)
  Receive Date: 20140122
  Receipt Date: 20140122
  Transmission Date: 20141002
  Serious: Yes (Death, Other)
  Sender: FDA-Public Use
  Company Number: OPIR20130017

PATIENT
  Age: 7 Month
  Sex: Male
  Weight: 8.16 kg

DRUGS (3)
  1. OPANA [Suspect]
     Indication: EXPOSURE DURING BREAST FEEDING
     Route: 063
     Dates: start: 20120928
  2. ALPRAZOLAM [Suspect]
     Indication: EXPOSURE DURING BREAST FEEDING
     Route: 063
     Dates: start: 20120928
  3. METHADONE [Suspect]
     Indication: EXPOSURE DURING BREAST FEEDING
     Route: 063
     Dates: start: 2012

REACTIONS (9)
  - Overdose [None]
  - Exposure during breast feeding [None]
  - Pulmonary oedema [None]
  - Tracheobronchitis [None]
  - Pneumonia [None]
  - Lethargy [None]
  - Drug withdrawal syndrome neonatal [None]
  - Streptococcus test positive [None]
  - Bacteraemia [None]
